FAERS Safety Report 13068838 (Version 2)
Quarter: 2017Q2

REPORT INFORMATION
  Report Type: Spontaneous
  Country: JP (occurrence: JP)
  Receive Date: 20161228
  Receipt Date: 20170411
  Transmission Date: 20170830
  Serious: Yes (Death)
  Sender: FDA-Public Use
  Company Number: JP-ACTELION-A-CH2016-147403

PATIENT
  Age: 68 Year
  Sex: Female

DRUGS (8)
  1. OPSUMIT [Suspect]
     Active Substance: MACITENTAN
     Indication: PULMONARY ARTERIAL HYPERTENSION
     Dosage: 10 MG, OD
     Route: 048
     Dates: start: 20161118, end: 20161127
  2. RABEPRAZOL [Concomitant]
     Active Substance: RABEPRAZOLE
  3. DORNER [Concomitant]
     Active Substance: BERAPROST SODIUM
  4. ADCIRCA [Concomitant]
     Active Substance: TADALAFIL
  5. SYMMETREL [Concomitant]
     Active Substance: AMANTADINE HYDROCHLORIDE
  6. PANALDINE [Concomitant]
     Active Substance: TICLOPIDINE HYDROCHLORIDE
  7. HYDREA [Concomitant]
     Active Substance: HYDROXYUREA
  8. OXYGEN. [Concomitant]
     Active Substance: OXYGEN

REACTIONS (2)
  - Pulmonary arterial hypertension [Fatal]
  - Disease progression [Fatal]

NARRATIVE: CASE EVENT DATE: 20161127
